FAERS Safety Report 15433969 (Version 2)
Quarter: 2019Q2

REPORT INFORMATION
  Report Type: Spontaneous
  Country: NL (occurrence: NL)
  Receive Date: 20180927
  Receipt Date: 20190515
  Transmission Date: 20190711
  Serious: Yes (Hospitalization)
  Sender: FDA-Public Use
  Company Number: NL-ACTELION-A-CH2018-179284

PATIENT
  Sex: Female

DRUGS (2)
  1. UPTRAVI [Suspect]
     Active Substance: SELEXIPAG
     Dosage: 200 MCG, BID
     Route: 048
  2. UPTRAVI [Suspect]
     Active Substance: SELEXIPAG
     Indication: PULMONARY ARTERIAL HYPERTENSION
     Dosage: 400 MCG, BID
     Route: 048
     Dates: start: 20161108

REACTIONS (4)
  - Weight decreased [Unknown]
  - Diarrhoea [Unknown]
  - Surgery [Unknown]
  - Muscular weakness [Unknown]
